FAERS Safety Report 25468582 (Version 2)
Quarter: 2025Q3

REPORT INFORMATION
  Report Type: Spontaneous
  Country: US (occurrence: US)
  Receive Date: 20250623
  Receipt Date: 20250818
  Transmission Date: 20251021
  Serious: No
  Sender: SANOFI AVENTIS
  Company Number: US-SA-2025SA174655

PATIENT
  Age: 64 Year
  Sex: Female

DRUGS (11)
  1. REZUROCK [Suspect]
     Active Substance: BELUMOSUDIL
     Indication: Chronic graft versus host disease
     Dosage: 200 MG, BID
     Route: 048
  2. ACYCLOVIR [Concomitant]
     Active Substance: ACYCLOVIR
  3. CALCIUM CITRATE\CHOLECALCIFEROL [Concomitant]
     Active Substance: CALCIUM CITRATE\CHOLECALCIFEROL
  4. DEXAMETHASONE [Concomitant]
     Active Substance: DEXAMETHASONE
  5. ELIQUIS [Concomitant]
     Active Substance: APIXABAN
  6. NORCO [Concomitant]
     Active Substance: ACETAMINOPHEN\HYDROCODONE BITARTRATE
  7. PANTOPRAZOLE [Concomitant]
     Active Substance: PANTOPRAZOLE
  8. SINGULAIR [Concomitant]
     Active Substance: MONTELUKAST SODIUM
  9. TRIAMCINOLONE [Concomitant]
     Active Substance: TRIAMCINOLONE
  10. TRELEGY ELLIPTA [Concomitant]
     Active Substance: FLUTICASONE FUROATE\UMECLIDINIUM BROMIDE\VILANTEROL TRIFENATATE
  11. Artificial tears [Concomitant]

REACTIONS (5)
  - Angular cheilitis [Not Recovered/Not Resolved]
  - Oral discomfort [Not Recovered/Not Resolved]
  - Oral mucosal blistering [Not Recovered/Not Resolved]
  - Weight decreased [Not Recovered/Not Resolved]
  - Skin ulcer [Not Recovered/Not Resolved]
